FAERS Safety Report 4909135-8 (Version None)
Quarter: 2006Q1

REPORT INFORMATION
  Report Type: 
  Country: None (occurrence: None)
  Receive Date: 20060208
  Receipt Date: 20060131
  Transmission Date: 20060701
  Serious: Yes (Other)
  Sender: FDA-Public Use
  Company Number: SUS1-2006-00106

PATIENT
  Age: 35 Year
  Sex: Male
  Weight: 74.8 kg

DRUGS (1)
  1. ADDERALL XR 10 [Suspect]
     Indication: ATTENTION DEFICIT/HYPERACTIVITY DISORDER
     Dosage: 20 MG, 1X/DAY: QD
     Dates: start: 20051201, end: 20060130

REACTIONS (1)
  - HYPERSENSITIVITY [None]
